FAERS Safety Report 7528087-8 (Version None)
Quarter: 2011Q2

REPORT INFORMATION
  Report Type: 
  Country: None (occurrence: None)
  Receive Date: 20110531
  Receipt Date: 20110516
  Transmission Date: 20111010
  Serious: Yes (Hospitalization)
  Sender: FDA-Public Use
  Company Number: AMAG201100124

PATIENT
  Sex: Female

DRUGS (1)
  1. FERAHEME [Suspect]
     Indication: ANAEMIA OF CHRONIC DISEASE
     Dosage: 510 MG, SINGLE, INTRAVENOUS
     Route: 042
     Dates: start: 20110506, end: 20110506

REACTIONS (5)
  - DEHYDRATION [None]
  - HYPOTENSION [None]
  - HYPOXIA [None]
  - DIZZINESS [None]
  - RENAL TUBULAR NECROSIS [None]
